FAERS Safety Report 19788445 (Version 1)
Quarter: 2021Q3

REPORT INFORMATION
  Report Type: Report from Study
  Country: US (occurrence: US)
  Receive Date: 20210903
  Receipt Date: 20210903
  Transmission Date: 20211014
  Serious: Yes (Other)
  Sender: FDA-Public Use
  Company Number: US-TAKEDA-US201922693

PATIENT
  Sex: Female

DRUGS (3)
  1. HUMAN NORMAL IMMUNOGLOBULIN; LIQUID [Suspect]
     Active Substance: HUMAN IMMUNOGLOBULIN G
     Indication: PRIMARY IMMUNODEFICIENCY SYNDROME
     Dosage: 35 GRAM, Q4WEEKS
     Route: 042
  2. GAMMAGARD S/D [Suspect]
     Active Substance: HUMAN IMMUNOGLOBULIN G
     Indication: PRIMARY IMMUNODEFICIENCY SYNDROME
     Dosage: UNK
     Route: 042
  3. GAMMAGARD S/D [Suspect]
     Active Substance: HUMAN IMMUNOGLOBULIN G
     Indication: PRIMARY IMMUNODEFICIENCY SYNDROME
     Dosage: UNK
     Route: 042

REACTIONS (13)
  - Headache [Unknown]
  - Product dose omission issue [Unknown]
  - Vertigo [Not Recovered/Not Resolved]
  - Infusion site pain [Unknown]
  - Gastrointestinal disorder [Unknown]
  - Rheumatoid arthritis [Unknown]
  - Infusion related reaction [Unknown]
  - Nausea [Unknown]
  - Infection [Recovered/Resolved]
  - Fatigue [Unknown]
  - Migraine [Unknown]
  - Product supply issue [Unknown]
  - Rash [Unknown]
